FAERS Safety Report 21047693 (Version 1)
Quarter: 2022Q3

REPORT INFORMATION
  Report Type: Spontaneous
  Country: FR (occurrence: FR)
  Receive Date: 20220706
  Receipt Date: 20220706
  Transmission Date: 20221026
  Serious: Yes (Hospitalization)
  Sender: FDA-Public Use
  Company Number: FR-MYLANLABS-2022M1050435

PATIENT
  Age: 59 Year
  Sex: Male

DRUGS (12)
  1. ETANERCEPT [Suspect]
     Active Substance: ETANERCEPT
     Indication: Rheumatoid arthritis
     Dosage: UNK
     Route: 065
     Dates: start: 2009
  2. ETANERCEPT [Suspect]
     Active Substance: ETANERCEPT
     Indication: Immunosuppressant drug therapy
  3. LEFLUNOMIDE [Suspect]
     Active Substance: LEFLUNOMIDE
     Indication: Rheumatoid arthritis
     Dosage: UNK
     Route: 065
     Dates: start: 2009
  4. LEFLUNOMIDE [Suspect]
     Active Substance: LEFLUNOMIDE
     Indication: Immunosuppressant drug therapy
  5. PREDNISONE [Suspect]
     Active Substance: PREDNISONE
     Indication: Rheumatoid arthritis
     Dosage: UNK
     Route: 048
     Dates: start: 2009
  6. PREDNISONE [Suspect]
     Active Substance: PREDNISONE
     Indication: Immunosuppressant drug therapy
     Dosage: 5 MILLIGRAM, QD (PROGRESSIVELY DECREASED TO FIVE MILLIGRAMS PER DAY)
     Route: 048
  7. PREDNISONE [Suspect]
     Active Substance: PREDNISONE
     Dosage: 1 MILLIGRAM/KILOGRAM, QD (ONE MILLIGRAM PER KILOGRAM PER DAY OF CORTICOTHERAPY WAS ADMINISTERED FOR
     Route: 048
  8. PREDNISONE [Suspect]
     Active Substance: PREDNISONE
     Dosage: 0.5 MILLIGRAM/KILOGRAM, QD
     Route: 048
  9. PREDNISONE [Suspect]
     Active Substance: PREDNISONE
     Dosage: THE DOSE OF PREDNISONE WAS PROGRESSIVELY REDUCED UNTIL REACHING 5 MILLIGRAM/KILOGRAM, QD
     Route: 048
  10. COTRIMOXAZOLE [Concomitant]
     Active Substance: SULFAMETHOXAZOLE\TRIMETHOPRIM
     Indication: Whipple^s disease
     Dosage: UNK
     Route: 065
     Dates: start: 201511
  11. DOXYCYCLINE [Concomitant]
     Active Substance: DOXYCYCLINE
     Indication: Whipple^s disease
     Dosage: UNK
     Route: 065
     Dates: start: 201511
  12. HYDROXYCHLOROQUINE [Concomitant]
     Active Substance: HYDROXYCHLOROQUINE
     Indication: Whipple^s disease
     Dosage: UNK
     Route: 065
     Dates: start: 201511

REACTIONS (1)
  - Immune reconstitution inflammatory syndrome [Recovered/Resolved]
